FAERS Safety Report 12484883 (Version 2)
Quarter: 2016Q3

REPORT INFORMATION
  Report Type: Report from Study
  Country: CA (occurrence: CA)
  Receive Date: 20160621
  Receipt Date: 20160803
  Transmission Date: 20161109
  Serious: Yes (Other)
  Sender: FDA-Public Use
  Company Number: CA-TAKEDA-2015TUS013889

PATIENT
  Age: 38 Year
  Sex: Female

DRUGS (1)
  1. VEDOLIZUMAB [Suspect]
     Active Substance: VEDOLIZUMAB
     Indication: COLITIS ULCERATIVE
     Dosage: 300 MG, UNK
     Route: 042
     Dates: start: 20150902

REACTIONS (9)
  - Amnesia [Recovered/Resolved]
  - Confusional state [Recovered/Resolved]
  - Pharyngitis [Recovered/Resolved]
  - Blepharospasm [Recovered/Resolved]
  - Drug dose omission [Unknown]
  - Viral infection [Recovered/Resolved]
  - Oropharyngeal pain [Recovered/Resolved]
  - Drug ineffective [Unknown]
  - Colitis ulcerative [Recovered/Resolved]

NARRATIVE: CASE EVENT DATE: 2015
